FAERS Safety Report 16387825 (Version 1)
Quarter: 2019Q2

REPORT INFORMATION
  Report Type: Spontaneous
  Country: CN (occurrence: CN)
  Receive Date: 20190604
  Receipt Date: 20190604
  Transmission Date: 20190711
  Serious: Yes (Other)
  Sender: FDA-Public Use
  Company Number: CN-ROCHE-2323435

PATIENT
  Age: 63 Year
  Sex: Male

DRUGS (9)
  1. XELODA [Suspect]
     Active Substance: CAPECITABINE
     Indication: ADENOCARCINOMA
     Route: 048
  2. 5-FLUOROURACIL [FLUOROURACIL] [Concomitant]
     Active Substance: FLUOROURACIL
     Dosage: 44 HOURS PUMPS
     Route: 065
     Dates: start: 20171019
  3. IRINOTECAN [Concomitant]
     Active Substance: IRINOTECAN
     Dosage: DAY1 AND DAY8
     Route: 065
     Dates: start: 20190314
  4. AVASTIN [Suspect]
     Active Substance: BEVACIZUMAB
     Indication: ADENOCARCINOMA
     Route: 065
  5. OXALIPLATIN. [Concomitant]
     Active Substance: OXALIPLATIN
     Dosage: FIRST DAY
     Route: 065
     Dates: start: 20171019
  6. CALCIUM FOLINATE [Concomitant]
     Active Substance: LEUCOVORIN CALCIUM
     Route: 065
     Dates: start: 20171019
  7. CETUXIMAB. [Concomitant]
     Active Substance: CETUXIMAB
     Route: 042
     Dates: start: 20190314
  8. RALTITREXED [Concomitant]
     Active Substance: RALTITREXED
     Route: 065
     Dates: start: 20190314
  9. 5-FLUOROURACIL [FLUOROURACIL] [Concomitant]
     Active Substance: FLUOROURACIL
     Dosage: FIRST AND SECOND DAY
     Route: 042

REACTIONS (11)
  - Gallbladder enlargement [Unknown]
  - Prostatic calcification [Unknown]
  - Hepatic cirrhosis [Unknown]
  - Vein disorder [Unknown]
  - Ascites [Unknown]
  - Lymphadenopathy [Unknown]
  - Adrenal disorder [Unknown]
  - Benign prostatic hyperplasia [Unknown]
  - Weight decreased [Unknown]
  - Liver disorder [Unknown]
  - Hypercoagulation [Unknown]
